FAERS Safety Report 10249975 (Version 4)
Quarter: 2020Q4

REPORT INFORMATION
  Report Type: Spontaneous
  Country: CA (occurrence: CA)
  Receive Date: 20140620
  Receipt Date: 20201222
  Transmission Date: 20210113
  Serious: Yes (Death, Hospitalization, Other)
  Sender: FDA-Public Use
  Company Number: CA-NAPPMUNDI-CAN-2013-0004556

PATIENT
  Age: 47 Year
  Sex: Female

DRUGS (15)
  1. DILAUDID [Interacting]
     Active Substance: HYDROMORPHONE HYDROCHLORIDE
     Indication: PRODUCT USED FOR UNKNOWN INDICATION
     Dosage: 2-4 MG, PRN
     Route: 065
     Dates: end: 20120620
  2. NARCOTICS [Interacting]
     Active Substance: UNSPECIFIED INGREDIENT
     Indication: PRODUCT USED FOR UNKNOWN INDICATION
  3. OXYCONTIN [Interacting]
     Active Substance: OXYCODONE HYDROCHLORIDE
     Indication: PRODUCT USED FOR UNKNOWN INDICATION
     Dosage: UNK
     Route: 065
  4. ENDOCET [Interacting]
     Active Substance: ACETAMINOPHEN\OXYCODONE HYDROCHLORIDE
     Indication: PRODUCT USED FOR UNKNOWN INDICATION
     Dosage: UNK
     Route: 065
  5. ALCOHOL. [Interacting]
     Active Substance: ALCOHOL
     Indication: PRODUCT USED FOR UNKNOWN INDICATION
     Dosage: UNK
     Route: 065
  6. MORPHINE SULFATE. [Interacting]
     Active Substance: MORPHINE SULFATE
     Indication: PRODUCT USED FOR UNKNOWN INDICATION
     Dosage: 10 MG, UNK
     Route: 065
     Dates: start: 20120607
  7. FENTANYL. [Interacting]
     Active Substance: FENTANYL
     Dosage: 150 MCG/HR, UNK
     Route: 062
     Dates: start: 20120620
  8. AMITRIPTYLINE [Interacting]
     Active Substance: AMITRIPTYLINE
     Indication: PRODUCT USED FOR UNKNOWN INDICATION
  9. FLEXERIL [Interacting]
     Active Substance: CYCLOBENZAPRINE HYDROCHLORIDE
     Indication: PRODUCT USED FOR UNKNOWN INDICATION
     Dosage: 40 MG, DAILY
     Route: 065
  10. FENTANYL. [Interacting]
     Active Substance: FENTANYL
     Indication: PRODUCT USED FOR UNKNOWN INDICATION
     Dosage: 75 MCG/HR, UNK
     Route: 062
     Dates: end: 20120620
  11. FLEXERIL [Interacting]
     Active Substance: CYCLOBENZAPRINE HYDROCHLORIDE
     Dosage: 40 MG, DAILY
     Route: 065
  12. OXYCODONE [Interacting]
     Active Substance: OXYCODONE
     Indication: PRODUCT USED FOR UNKNOWN INDICATION
     Dosage: UNK
     Route: 065
  13. NAPROXEN                           /00256202/ [Interacting]
     Active Substance: NAPROXEN SODIUM
     Indication: PRODUCT USED FOR UNKNOWN INDICATION
     Dosage: UNK
     Route: 065
  14. OXYNEO [Suspect]
     Active Substance: OXYCODONE
     Indication: PRODUCT USED FOR UNKNOWN INDICATION
     Dosage: UNK
     Route: 065
  15. NICOTINE. [Interacting]
     Active Substance: NICOTINE
     Indication: PRODUCT USED FOR UNKNOWN INDICATION
     Dosage: UNK
     Route: 065

REACTIONS (25)
  - Myocardial infarction [Fatal]
  - Cardiac death [Fatal]
  - Infection [Fatal]
  - Respiratory arrest [Fatal]
  - Dysarthria [Fatal]
  - Gait disturbance [Fatal]
  - Depressed mood [Fatal]
  - Paraesthesia [Fatal]
  - Mental impairment [Fatal]
  - Dizziness [Fatal]
  - Overdose [Fatal]
  - Emotional disorder [Fatal]
  - Functional gastrointestinal disorder [Fatal]
  - Nausea [Fatal]
  - Drug interaction [Fatal]
  - Intentional product misuse [Fatal]
  - Gastric dilatation [Fatal]
  - Anxiety [Fatal]
  - Tachycardia [Fatal]
  - Drug tolerance [Fatal]
  - Somnolence [Fatal]
  - Loss of consciousness [Fatal]
  - Pulmonary oedema [Fatal]
  - Malaise [Fatal]
  - Sedation [Fatal]

NARRATIVE: CASE EVENT DATE: 20120618
